FAERS Safety Report 4470216-7 (Version None)
Quarter: 2004Q4

REPORT INFORMATION
  Report Type: 
  Country: None (occurrence: None)
  Receive Date: 20041008
  Receipt Date: 20030605
  Transmission Date: 20050328
  Serious: Yes (Hospitalization)
  Sender: FDA-Public Use
  Company Number: US-MERCK-0306USA00852

PATIENT
  Age: 66 Year
  Sex: Male
  Weight: 74 kg

DRUGS (6)
  1. DARVOCET-N 100 [Concomitant]
     Route: 065
  2. CELEBREX [Concomitant]
     Route: 048
  3. TOPROL-XL [Concomitant]
     Route: 065
  4. VIOXX [Suspect]
     Route: 048
     Dates: end: 20020701
  5. VIOXX [Suspect]
     Route: 048
  6. AMBIEN [Concomitant]
     Route: 065

REACTIONS (15)
  - ACUTE MYOCARDIAL INFARCTION [None]
  - ARTHRITIS [None]
  - ATRIOVENTRICULAR BLOCK FIRST DEGREE [None]
  - BACK PAIN [None]
  - BLOOD PRESSURE SYSTOLIC INCREASED [None]
  - BRONCHITIS [None]
  - CORONARY ARTERY DISEASE [None]
  - COUGH [None]
  - DRUG HYPERSENSITIVITY [None]
  - DYSPNOEA [None]
  - FATIGUE [None]
  - INTERMITTENT CLAUDICATION [None]
  - NODAL ARRHYTHMIA [None]
  - POLYTRAUMATISM [None]
  - UPPER RESPIRATORY TRACT INFECTION [None]
